FAERS Safety Report 7824595-0 (Version None)
Quarter: 2011Q4

REPORT INFORMATION
  Report Type: 
  Country: None (occurrence: None)
  Receive Date: 20111019
  Receipt Date: 20111005
  Transmission Date: 20120403
  Serious: Yes (Other)
  Sender: FDA-Public Use
  Company Number: US-ELI_LILLY_AND_COMPANY-US201110001921

PATIENT
  Sex: Female

DRUGS (14)
  1. CALCIUM CARBONATE [Concomitant]
  2. LIPITOR [Concomitant]
     Indication: BLOOD CHOLESTEROL INCREASED
  3. POTASSIUM CHLORIDE [Concomitant]
  4. CINNAMON [Concomitant]
  5. ZETIA [Concomitant]
     Indication: BLOOD CHOLESTEROL INCREASED
  6. VITAMIN D [Concomitant]
  7. TEVETEN [Concomitant]
     Indication: HYPERTENSION
  8. FORTEO [Suspect]
     Indication: OSTEOPOROSIS
     Dosage: 20 UG, QD
     Route: 065
  9. FUROSEMIDE [Concomitant]
  10. LEVOTHYROXINE SODIUM [Concomitant]
     Indication: HYPOTHYROIDISM
  11. VENLAFAXINE [Concomitant]
     Indication: ANXIETY
  12. ASPIRIN [Concomitant]
     Dosage: 325 MG, QD
  13. GABAPENTIN [Concomitant]
     Indication: TRANSIENT ISCHAEMIC ATTACK
  14. LOVAZA [Concomitant]

REACTIONS (10)
  - BONE DISORDER [None]
  - CONTUSION [None]
  - CARDIAC FAILURE CONGESTIVE [None]
  - FALL [None]
  - FATIGUE [None]
  - DRUG DOSE OMISSION [None]
  - ARTHRALGIA [None]
  - INJECTION SITE INDURATION [None]
  - MENISCUS LESION [None]
  - OEDEMA PERIPHERAL [None]
